FAERS Safety Report 13609292 (Version 1)
Quarter: 2017Q2

REPORT INFORMATION
  Report Type: Spontaneous
  Country: US (occurrence: US)
  Receive Date: 20170602
  Receipt Date: 20170602
  Transmission Date: 20170830
  Serious: No
  Sender: FDA-Public Use
  Company Number: PHEH2017US016506

PATIENT
  Sex: Male

DRUGS (1)
  1. COSENTYX [Suspect]
     Active Substance: SECUKINUMAB
     Indication: PRODUCT USED FOR UNKNOWN INDICATION
     Dosage: 150 MG/ML X 2
     Route: 065

REACTIONS (4)
  - Skin lesion [Recovered/Resolved]
  - Discomfort [Unknown]
  - Pain [Unknown]
  - Inappropriate schedule of drug administration [Unknown]
